FAERS Safety Report 6662895-0 (Version None)
Quarter: 2010Q2

REPORT INFORMATION
  Report Type: 
  Country: None (occurrence: None)
  Receive Date: 20100401
  Receipt Date: 20100322
  Transmission Date: 20101027
  Serious: Yes (Other)
  Sender: FDA-Public Use
  Company Number: BR-JNJFOC-20100105057

PATIENT
  Age: 48 Year
  Sex: Female
  Weight: 61 kg

DRUGS (6)
  1. MICRONOR [Suspect]
     Indication: CONTRACEPTION
     Route: 065
  2. CARBAMAZEPINE [Interacting]
     Indication: SCHIZOPHRENIA
     Route: 065
  3. ZYPREXA [Concomitant]
     Indication: DEPRESSION
     Route: 065
  4. DIAZEPAM [Concomitant]
     Indication: SCHIZOPHRENIA
     Route: 065
  5. DIAZEPAM [Concomitant]
     Indication: DEPRESSION
     Route: 065
  6. UNKNOWN MEDICATION [Concomitant]
     Indication: SCHIZOPHRENIA
     Route: 065

REACTIONS (4)
  - AXILLARY MASS [None]
  - DRUG INTERACTION [None]
  - INAPPROPRIATE SCHEDULE OF DRUG ADMINISTRATION [None]
  - VAGINAL HAEMORRHAGE [None]
